FAERS Safety Report 5129096-9 (Version None)
Quarter: 2006Q4

REPORT INFORMATION
  Report Type: 
  Country: None (occurrence: None)
  Receive Date: 20061016
  Receipt Date: 20061016
  Transmission Date: 20070319
  Serious: Yes (Other)
  Sender: FDA-Public Use
  Company Number: None

PATIENT
  Age: 69 Year
  Sex: Male

DRUGS (3)
  1. REVLIMID [Suspect]
     Indication: MYELODYSPLASTIC SYNDROME
     Dosage: 5MG QD PO
     Route: 048
     Dates: start: 20060822, end: 20060918
  2. REVLIMID [Suspect]
     Indication: MYELODYSPLASTIC SYNDROME
     Dosage: 10MG QD PO
     Route: 048
     Dates: start: 20060919, end: 20061011
  3. NASAREL [Concomitant]

REACTIONS (1)
  - NEUTROPHIL COUNT DECREASED [None]
